FAERS Safety Report 17413606 (Version 3)
Quarter: 2020Q2

REPORT INFORMATION
  Report Type: Spontaneous
  Country: ES (occurrence: ES)
  Receive Date: 20200213
  Receipt Date: 20200511
  Transmission Date: 20200713
  Serious: Yes (Other)
  Sender: FDA-Public Use
  Company Number: NVSC2020ES037003

PATIENT
  Age: 34 Year
  Sex: Male

DRUGS (6)
  1. PREDNISONE. [Suspect]
     Active Substance: PREDNISONE
     Dosage: 60 MG, QD, INCREASED TO 60MG/DAY DUE TO RELAPSE OF NEPHROTIC SYNDROME
     Route: 065
  2. TACROLIMUS. [Suspect]
     Active Substance: TACROLIMUS
     Indication: PROTEINURIA
     Dosage: UNK
     Route: 065
  3. PREDNISONE. [Suspect]
     Active Substance: PREDNISONE
     Indication: NEPHROTIC SYNDROME
     Dosage: 30 MG, QD, TAPERED DOWN AFTER COMPLETE RESPONSE TO NEPHROTIC SYNDROME
     Route: 065
  4. PREDNISONE. [Suspect]
     Active Substance: PREDNISONE
     Dosage: 40 MG, QD, AFTER A PARTIAL RESPONSE TO NEPHROTIC SYNDROME
     Route: 065
  5. TACROLIMUS. [Suspect]
     Active Substance: TACROLIMUS
     Indication: NEPHROTIC SYNDROME
     Route: 065
  6. PREDNISONE. [Suspect]
     Active Substance: PREDNISONE
     Indication: GLOMERULONEPHRITIS MINIMAL LESION
     Dosage: 60 MG, QD
     Route: 065

REACTIONS (5)
  - Therapy partial responder [Unknown]
  - Hodgkin^s disease nodular sclerosis stage II [Recovered/Resolved]
  - Product use in unapproved indication [Unknown]
  - Epstein-Barr virus infection [Recovered/Resolved]
  - Nephrotic syndrome [Unknown]
